FAERS Safety Report 7907403-9 (Version None)
Quarter: 2011Q4

REPORT INFORMATION
  Report Type: 
  Country: None (occurrence: None)
  Receive Date: 20111109
  Receipt Date: 20111109
  Transmission Date: 20120403
  Serious: No
  Sender: FDA-Public Use
  Company Number: None

PATIENT

DRUGS (1)
  1. FOSAMAX [Suspect]

REACTIONS (19)
  - FEMUR FRACTURE [None]
  - FEELING ABNORMAL [None]
  - HAND FRACTURE [None]
  - SOCIAL PROBLEM [None]
  - FOOT FRACTURE [None]
  - RIB FRACTURE [None]
  - ANKLE FRACTURE [None]
  - FALL [None]
  - EMOTIONAL DISORDER [None]
  - SUICIDAL IDEATION [None]
  - ANXIETY [None]
  - NIGHTMARE [None]
  - FATIGUE [None]
  - PATELLA FRACTURE [None]
  - WEIGHT DECREASED [None]
  - OSTEOGENESIS IMPERFECTA [None]
  - POST-TRAUMATIC STRESS DISORDER [None]
  - ECONOMIC PROBLEM [None]
  - OSTEONECROSIS [None]
